FAERS Safety Report 25054410 (Version 1)
Quarter: 2025Q1

REPORT INFORMATION
  Report Type: Spontaneous
  Country: US (occurrence: US)
  Receive Date: 20250307
  Receipt Date: 20250307
  Transmission Date: 20250408
  Serious: No
  Sender: SANOFI AVENTIS
  Company Number: US-SA-2025SA040842

PATIENT
  Age: 65 Year
  Sex: Female

DRUGS (9)
  1. DUPIXENT [Suspect]
     Active Substance: DUPILUMAB
     Indication: Asthma
     Dosage: 300 MG, QOW
     Route: 058
     Dates: start: 20250131
  2. TRELEGY ELLIPTA [Concomitant]
     Active Substance: FLUTICASONE FUROATE\UMECLIDINIUM BROMIDE\VILANTEROL TRIFENATATE
  3. TRAMADOL HCL [Concomitant]
     Active Substance: TRAMADOL HYDROCHLORIDE
  4. TYLENOL [Concomitant]
     Active Substance: ACETAMINOPHEN
  5. JARDIANCE [Concomitant]
     Active Substance: EMPAGLIFLOZIN
  6. BENZONATATE [Concomitant]
     Active Substance: BENZONATATE
  7. ROSUVASTATIN [Concomitant]
     Active Substance: ROSUVASTATIN
  8. OZEMPIC [Concomitant]
     Active Substance: SEMAGLUTIDE
  9. ALBUTEROL SULFATE [Concomitant]
     Active Substance: ALBUTEROL SULFATE

REACTIONS (1)
  - Dyspepsia [Recovered/Resolved]

NARRATIVE: CASE EVENT DATE: 20250101
